FAERS Safety Report 20059486 (Version 1)
Quarter: 2021Q4

REPORT INFORMATION
  Report Type: Spontaneous
  Country: US (occurrence: US)
  Receive Date: 20211111
  Receipt Date: 20211111
  Transmission Date: 20220303
  Serious: No
  Sender: FDA-Public Use
  Company Number: US-ALKERMES INC.-ALK-2021-005745

PATIENT
  Age: 61 Year
  Sex: Female
  Weight: 59.864 kg

DRUGS (8)
  1. LYBALVI [Suspect]
     Active Substance: OLANZAPINE\SAMIDORPHAN L-MALATE
     Indication: Bipolar disorder
     Dosage: 5/10 MILLIGRAM, QD
     Route: 048
     Dates: start: 20211103, end: 20211103
  2. DIVALPROEX SODIUM [Concomitant]
     Active Substance: DIVALPROEX SODIUM
     Indication: Mania
     Dosage: 1000 MILLIGRAM, HS
     Route: 065
  3. DIVALPROEX SODIUM [Concomitant]
     Active Substance: DIVALPROEX SODIUM
     Indication: Bipolar disorder
  4. UNSPECIFIED INGREDIENT [Concomitant]
     Active Substance: UNSPECIFIED INGREDIENT
     Indication: Oedema
     Dosage: UNK
     Route: 065
  5. TRIAMTERENE [Concomitant]
     Active Substance: TRIAMTERENE
     Indication: Oedema
     Dosage: UNK
     Route: 065
  6. LEVOTHYROXINE [Concomitant]
     Active Substance: LEVOTHYROXINE
     Indication: Product used for unknown indication
     Dosage: UNK
     Route: 065
  7. GEODON [Concomitant]
     Active Substance: ZIPRASIDONE HYDROCHLORIDE\ZIPRASIDONE MESYLATE
     Indication: Bipolar disorder
     Dosage: UNK
     Dates: start: 2021, end: 2021
  8. GEODON [Concomitant]
     Active Substance: ZIPRASIDONE HYDROCHLORIDE\ZIPRASIDONE MESYLATE
     Dosage: UNK

REACTIONS (6)
  - Insomnia [Not Recovered/Not Resolved]
  - Euphoric mood [Unknown]
  - Orthostatic hypotension [Not Recovered/Not Resolved]
  - Headache [Not Recovered/Not Resolved]
  - Dizziness postural [Recovered/Resolved]
  - Fall [Recovered/Resolved]

NARRATIVE: CASE EVENT DATE: 20211103
